FAERS Safety Report 4398874-6 (Version None)
Quarter: 2004Q3

REPORT INFORMATION
  Report Type: 
  Country: None (occurrence: None)
  Receive Date: 20040712
  Receipt Date: 20040621
  Transmission Date: 20050211
  Serious: Yes (Hospitalization, Other)
  Sender: FDA-Public Use
  Company Number: USA040670537

PATIENT
  Age: 65 Year
  Sex: Female
  Weight: 50 kg

DRUGS (1)
  1. HUMALOG [Suspect]
     Dates: start: 20000101

REACTIONS (4)
  - BLOOD GLUCOSE INCREASED [None]
  - PANCREAS TRANSPLANT [None]
  - PHARMACEUTICAL PRODUCT COMPLAINT [None]
  - TRANSPLANT REJECTION [None]
